FAERS Safety Report 16315899 (Version 1)
Quarter: 2019Q2

REPORT INFORMATION
  Report Type: Spontaneous
  Country: GB (occurrence: GB)
  Receive Date: 20190515
  Receipt Date: 20190515
  Transmission Date: 20190711
  Serious: Yes (Hospitalization, Other)
  Sender: FDA-Public Use
  Company Number: GB-MYLANLABS-2019M1045497

PATIENT

DRUGS (11)
  1. IMATINIB. [Suspect]
     Active Substance: IMATINIB MESYLATE
     Dosage: 100 MILLIGRAM, QD
     Route: 065
     Dates: start: 20170410
  2. IMATINIB. [Suspect]
     Active Substance: IMATINIB MESYLATE
     Dosage: 200 MILLIGRAM, QD
     Route: 065
     Dates: start: 20171116
  3. IMATINIB. [Suspect]
     Active Substance: IMATINIB MESYLATE
     Dosage: UNK,(200 MG /300MG)
     Route: 065
     Dates: start: 20171204
  4. IMATINIB. [Suspect]
     Active Substance: IMATINIB MESYLATE
     Dosage: 200 MILLIGRAM, QD
     Route: 065
     Dates: start: 20171211, end: 20171228
  5. IMATINIB. [Suspect]
     Active Substance: IMATINIB MESYLATE
     Dosage: 200 MILLIGRAM, QD
     Route: 065
     Dates: start: 20180125, end: 20180220
  6. BOSUTINIB [Suspect]
     Active Substance: BOSUTINIB
     Indication: PRODUCT USED FOR UNKNOWN INDICATION
     Dosage: 100 MILLIGRAM, QD
     Route: 065
     Dates: start: 20170831
  7. BOSUTINIB [Suspect]
     Active Substance: BOSUTINIB
     Dosage: 100 MG, QOD
     Route: 065
     Dates: start: 20180712, end: 20180724
  8. IMATINIB. [Suspect]
     Active Substance: IMATINIB MESYLATE
     Dosage: 200 MILLIGRAM, QD
     Route: 065
     Dates: start: 20170511, end: 201708
  9. IMATINIB. [Suspect]
     Active Substance: IMATINIB MESYLATE
     Dosage: 400 MILLIGRAM, QD
     Route: 065
     Dates: start: 20170302, end: 20170316
  10. IMATINIB. [Suspect]
     Active Substance: IMATINIB MESYLATE
     Dosage: 200 MILLIGRAM, QD
     Route: 065
     Dates: start: 20170831
  11. IMATINIB. [Suspect]
     Active Substance: IMATINIB MESYLATE
     Indication: CHRONIC MYELOID LEUKAEMIA
     Dosage: 300 MILLIGRAM, QD
     Route: 065
     Dates: start: 20170223

REACTIONS (10)
  - Condition aggravated [Unknown]
  - Anaemia [Unknown]
  - Leukopenia [Unknown]
  - Pulmonary oedema [Unknown]
  - Neutropenia [Unknown]
  - Toxicity to various agents [Unknown]
  - Myocardial ischaemia [Unknown]
  - Cytogenetic analysis abnormal [Unknown]
  - Fluid overload [Unknown]
  - Fluid retention [Unknown]
